FAERS Safety Report 22905376 (Version 3)
Quarter: 2024Q2

REPORT INFORMATION
  Report Type: Other
  Country: US (occurrence: None)
  Receive Date: 20230905
  Receipt Date: 20240425
  Transmission Date: 20240715
  Serious: No
  Sender: FDA-Public Use
  Company Number: US-ROCHE-3414664

PATIENT
  Age: 47 Year
  Sex: Female
  Weight: 81.266 kg

DRUGS (4)
  1. OCREVUS [Suspect]
     Active Substance: OCRELIZUMAB
     Indication: Relapsing-remitting multiple sclerosis
     Dosage: 20ML OF OCREVUS ADDED TO 500ML OF NORMAL SALINE, DATE OF TREATMENT : 15/FEB/2021, 14/FEB/2022, 13/FE
     Route: 042
     Dates: start: 2019
  2. OCREVUS [Suspect]
     Active Substance: OCRELIZUMAB
     Route: 042
     Dates: start: 20200211
  3. OCREVUS [Suspect]
     Active Substance: OCRELIZUMAB
     Dosage: 300 MG SINGLE-USE VIAL?DATE OF TREATMENT : 2021-02-15 AND 2022-02-14.
     Route: 042
     Dates: start: 20200204, end: 20210204
  4. TECFIDERA [Concomitant]
     Active Substance: DIMETHYL FUMARATE

REACTIONS (10)
  - Sinusitis [Unknown]
  - COVID-19 [Recovered/Resolved]
  - Bronchitis [Not Recovered/Not Resolved]
  - Pyrexia [Recovered/Resolved]
  - Carpal tunnel syndrome [Not Recovered/Not Resolved]
  - Muscular weakness [Recovered/Resolved]
  - Fatigue [Recovered/Resolved]
  - Memory impairment [Recovered/Resolved]
  - Malaise [Recovered/Resolved]
  - Palpitations [Recovered/Resolved]

NARRATIVE: CASE EVENT DATE: 20230124
